FAERS Safety Report 7936611-6 (Version None)
Quarter: 2011Q4

REPORT INFORMATION
  Report Type: 
  Country: None (occurrence: None)
  Receive Date: 20111123
  Receipt Date: 20111115
  Transmission Date: 20120403
  Serious: Yes (Other)
  Sender: FDA-Public Use
  Company Number: DE-JNJFOC-20111106400

PATIENT
  Age: 20 Year
  Sex: Male

DRUGS (28)
  1. CYCLOPHOSPHAMIDE [Suspect]
     Route: 065
  2. DEXAMETHASONE [Suspect]
     Indication: BURKITT'S LYMPHOMA
     Route: 065
  3. DOXORUBICIN HCL [Suspect]
     Route: 042
  4. DEXAMETHASONE [Suspect]
     Route: 065
  5. DOXORUBICIN HCL [Suspect]
     Route: 042
  6. VINCRISTINE [Suspect]
     Indication: BURKITT'S LYMPHOMA
     Route: 065
  7. VINCRISTINE [Suspect]
     Route: 065
  8. METHOTREXATE [Suspect]
     Indication: BURKITT'S LYMPHOMA
     Route: 065
  9. METHOTREXATE [Suspect]
     Route: 065
  10. CYCLOPHOSPHAMIDE [Suspect]
     Indication: BURKITT'S LYMPHOMA
     Route: 065
  11. CYCLOPHOSPHAMIDE [Suspect]
     Dosage: A1-A3
     Route: 065
  12. DOXORUBICIN HCL [Suspect]
     Route: 042
  13. CYCLOPHOSPHAMIDE [Suspect]
     Route: 065
  14. CYCLOPHOSPHAMIDE [Suspect]
     Route: 065
  15. DEXAMETHASONE [Suspect]
     Route: 065
  16. METHOTREXATE [Suspect]
     Route: 065
  17. METHOTREXATE [Suspect]
     Route: 065
  18. CYTARABINE [Suspect]
     Indication: BURKITT'S LYMPHOMA
     Route: 065
  19. PREDNISONE TAB [Suspect]
     Indication: BURKITT'S LYMPHOMA
     Route: 065
  20. DOXORUBICIN HCL [Suspect]
     Indication: BURKITT'S LYMPHOMA
     Route: 042
  21. VINCRISTINE [Suspect]
     Route: 065
  22. CYTARABINE [Suspect]
     Route: 065
  23. CYTARABINE [Suspect]
     Route: 065
  24. VINCRISTINE [Suspect]
     Route: 065
  25. DEXAMETHASONE [Suspect]
     Route: 065
  26. CYTARABINE [Suspect]
     Route: 065
  27. RITUXIMAB [Suspect]
     Indication: BURKITT'S LYMPHOMA
     Dosage: DAY 1
     Route: 065
  28. DEPOCYT [Suspect]
     Indication: BURKITT'S LYMPHOMA
     Route: 065

REACTIONS (6)
  - HYPERKALAEMIA [None]
  - FEBRILE BONE MARROW APLASIA [None]
  - HERPES SIMPLEX [None]
  - MUCOSAL INFLAMMATION [None]
  - HEPATIC ENZYME INCREASED [None]
  - PNEUMOCYSTIS JIROVECI PNEUMONIA [None]
